FAERS Safety Report 6870306-5 (Version None)
Quarter: 2010Q3

REPORT INFORMATION
  Report Type: 
  Country: None (occurrence: None)
  Receive Date: 20100723
  Receipt Date: 20100715
  Transmission Date: 20110219
  Serious: No
  Sender: FDA-Public Use
  Company Number: US-BIOGENIDEC-2010BI024176

PATIENT
  Age: 58 Year
  Sex: Female

DRUGS (2)
  1. TYSABRI [Suspect]
     Indication: MULTIPLE SCLEROSIS
     Route: 042
     Dates: start: 20070130, end: 20070523
  2. TYSABRI [Suspect]
     Route: 042
     Dates: start: 20091218

REACTIONS (3)
  - CENTRAL NERVOUS SYSTEM LESION [None]
  - DRUG INEFFECTIVE [None]
  - MULTIPLE SCLEROSIS [None]
